FAERS Safety Report 8486914-4 (Version None)
Quarter: 2012Q3

REPORT INFORMATION
  Report Type: 
  Country: None (occurrence: None)
  Receive Date: 20120704
  Receipt Date: 20120626
  Transmission Date: 20120928
  Serious: Yes (Other)
  Sender: FDA-Public Use
  Company Number: US-BRISTOL-MYERS SQUIBB COMPANY-16357469

PATIENT
  Age: 70 Year
  Sex: Female

DRUGS (1)
  1. ORENCIA [Suspect]
     Dosage: INF: 3. LAST INF: 17DEC11,20JUN12
     Route: 042
     Dates: start: 20111101

REACTIONS (5)
  - ARTHRALGIA [None]
  - ARTHROPATHY [None]
  - OEDEMA PERIPHERAL [None]
  - INFLUENZA [None]
  - MUSCULOSKELETAL STIFFNESS [None]
